FAERS Safety Report 5267813-8 (Version None)
Quarter: 2007Q1

REPORT INFORMATION
  Report Type: 
  Country: None (occurrence: None)
  Receive Date: 20070316
  Receipt Date: 20070307
  Transmission Date: 20070707
  Serious: Yes (Hospitalization, Other)
  Sender: FDA-Public Use
  Company Number: JP-PFIZER INC-2007018582

PATIENT
  Age: 63 Year
  Sex: Female

DRUGS (3)
  1. MEDROL [Suspect]
     Indication: IMMUNOSUPPRESSION
     Route: 048
  2. NEORAL [Concomitant]
     Indication: IMMUNOSUPPRESSION
     Route: 048
  3. CELLCEPT [Concomitant]
     Indication: IMMUNOSUPPRESSION
     Route: 048

REACTIONS (2)
  - KIDNEY TRANSPLANT REJECTION [None]
  - PANCYTOPENIA [None]
